FAERS Safety Report 8263557-9 (Version None)
Quarter: 2012Q1

REPORT INFORMATION
  Report Type: 
  Country: None (occurrence: None)
  Receive Date: 20120327
  Receipt Date: 20090130
  Transmission Date: 20120608
  Serious: Yes (Other)
  Sender: FDA-Public Use
  Company Number: PHEH2009US01333

PATIENT
  Sex: Female

DRUGS (9)
  1. FAMOTIDINE [Concomitant]
  2. NORTRIPTYLINE HCL [Concomitant]
  3. COMPAZINE [Concomitant]
  4. BENAZEPRIL HYDROCHLORIDE [Concomitant]
  5. HYDROCHLOROTHIAZIDE [Concomitant]
  6. METOCLOPRAMIDE [Concomitant]
  7. NEXIUM [Concomitant]
  8. GLEEVEC [Suspect]
     Indication: CHRONIC MYELOID LEUKAEMIA
     Dosage: 400 MG, QD, ORAL
     Route: 048
     Dates: start: 20090102
  9. OXYCODONE W/PARACETAMOL (OXYCODONE, PARACETAMOL) [Concomitant]

REACTIONS (3)
  - BONE PAIN [None]
  - ABASIA [None]
  - ARTHRALGIA [None]
